FAERS Safety Report 9594492 (Version 1)
Quarter: 2013Q4

REPORT INFORMATION
  Report Type: Spontaneous
  Country: US (occurrence: US)
  Receive Date: 20131004
  Receipt Date: 20131004
  Transmission Date: 20140711
  Serious: No
  Sender: FDA-Public Use
  Company Number: US-GLAXOSMITHKLINE-A0992915A

PATIENT
  Sex: Female

DRUGS (7)
  1. IMITREX [Suspect]
     Indication: MIGRAINE
     Route: 045
  2. VITAMIN B2 [Concomitant]
  3. VALIUM [Concomitant]
  4. RANITIDINE [Concomitant]
  5. ALEVE [Concomitant]
  6. ADVIL [Concomitant]
  7. PROMETHAZINE [Concomitant]

REACTIONS (1)
  - Epistaxis [Unknown]
